FAERS Safety Report 7527112-8 (Version None)
Quarter: 2011Q2

REPORT INFORMATION
  Report Type: 
  Country: None (occurrence: None)
  Receive Date: 20110607
  Receipt Date: 20110524
  Transmission Date: 20111010
  Serious: Yes (Congenital Anomaly)
  Sender: FDA-Public Use
  Company Number: US-MYLANLABS-2011S1011015

PATIENT
  Sex: Male

DRUGS (7)
  1. LAMOTRIGINE [Suspect]
     Indication: BIPOLAR DISORDER
     Dosage: 200MG
     Route: 064
  2. LAMOTRIGINE [Suspect]
     Dosage: 250MG
     Route: 064
  3. LAMOTRIGINE [Suspect]
     Dosage: 250MG
     Route: 064
  4. ZOLPIDEM [Suspect]
     Route: 065
  5. LAMOTRIGINE [Suspect]
     Indication: INSOMNIA
     Dosage: 200MG
     Route: 064
  6. LAMOTRIGINE [Suspect]
     Indication: IRRITABILITY
     Dosage: 200MG
     Route: 064
  7. LAMOTRIGINE [Suspect]
     Dosage: 250MG
     Route: 064

REACTIONS (1)
  - PILONIDAL CYST CONGENITAL [None]
